FAERS Safety Report 5243974-1 (Version None)
Quarter: 2007Q1

REPORT INFORMATION
  Report Type: 
  Country: None (occurrence: None)
  Receive Date: 20070220
  Receipt Date: 20070220
  Transmission Date: 20070707
  Serious: Yes (Other)
  Sender: FDA-Public Use
  Company Number: None

PATIENT
  Age: 2 Year
  Sex: Male
  Weight: 44.4525 kg

DRUGS (2)
  1. ADVAIR DISKUS 100/50 [Suspect]
     Indication: ASTHMA
     Dosage: 1 PUFF 1 X DAY INHAL
     Route: 055
     Dates: start: 20050601, end: 20060901
  2. FLOVENT HFA [Suspect]
     Indication: ASTHMA
     Dosage: 1 PUFF 2 X DAY INHAL
     Route: 055
     Dates: start: 20060901, end: 20070216

REACTIONS (3)
  - COORDINATION ABNORMAL [None]
  - ILL-DEFINED DISORDER [None]
  - WEIGHT INCREASED [None]
